FAERS Safety Report 18108506 (Version 3)
Quarter: 2020Q4

REPORT INFORMATION
  Report Type: Report from Study
  Country: None (occurrence: US)
  Receive Date: 20200804
  Receipt Date: 20201028
  Transmission Date: 20210113
  Serious: Yes (Hospitalization)
  Sender: FDA-Public Use
  Company Number: US-ABBVIE-20K-163-3503287-00

PATIENT
  Age: 52 Year
  Sex: Female
  Weight: 97.61 kg

DRUGS (1)
  1. HUMIRA [Suspect]
     Active Substance: ADALIMUMAB
     Indication: PSORIATIC ARTHROPATHY
     Route: 058
     Dates: start: 2019, end: 20200825

REACTIONS (2)
  - Arthritis infective [Recovered/Resolved]
  - Device connection issue [Recovered/Resolved]

NARRATIVE: CASE EVENT DATE: 202004
